FAERS Safety Report 25584873 (Version 1)
Quarter: 2025Q3

REPORT INFORMATION
  Report Type: Spontaneous
  Country: US (occurrence: US)
  Receive Date: 20250721
  Receipt Date: 20250721
  Transmission Date: 20251021
  Serious: Yes (Other)
  Sender: MYLAN
  Company Number: US-MYLANLABS-2025M1059218

PATIENT
  Age: 86 Year
  Sex: Male

DRUGS (32)
  1. TRIAMCINOLONE [Suspect]
     Active Substance: TRIAMCINOLONE
     Indication: Drug eruption
     Dosage: UNK, BID
  2. TRIAMCINOLONE [Suspect]
     Active Substance: TRIAMCINOLONE
     Dosage: UNK, BID
     Route: 061
  3. TRIAMCINOLONE [Suspect]
     Active Substance: TRIAMCINOLONE
     Dosage: UNK, BID
     Route: 061
  4. TRIAMCINOLONE [Suspect]
     Active Substance: TRIAMCINOLONE
     Dosage: UNK, BID
  5. PEMBROLIZUMAB [Concomitant]
     Active Substance: PEMBROLIZUMAB
     Indication: Prostate cancer metastatic
     Dates: start: 202306, end: 202310
  6. PEMBROLIZUMAB [Concomitant]
     Active Substance: PEMBROLIZUMAB
     Route: 065
     Dates: start: 202306, end: 202310
  7. PEMBROLIZUMAB [Concomitant]
     Active Substance: PEMBROLIZUMAB
     Route: 065
     Dates: start: 202306, end: 202310
  8. PEMBROLIZUMAB [Concomitant]
     Active Substance: PEMBROLIZUMAB
     Dates: start: 202306, end: 202310
  9. DUPILUMAB [Concomitant]
     Active Substance: DUPILUMAB
     Indication: Drug eruption
  10. DUPILUMAB [Concomitant]
     Active Substance: DUPILUMAB
  11. DUPILUMAB [Concomitant]
     Active Substance: DUPILUMAB
     Route: 058
  12. DUPILUMAB [Concomitant]
     Active Substance: DUPILUMAB
     Route: 058
  13. DUPILUMAB [Concomitant]
     Active Substance: DUPILUMAB
     Dosage: 300 MILLIGRAM, BIWEEKLY
  14. DUPILUMAB [Concomitant]
     Active Substance: DUPILUMAB
     Dosage: 300 MILLIGRAM, BIWEEKLY
  15. DUPILUMAB [Concomitant]
     Active Substance: DUPILUMAB
     Dosage: 300 MILLIGRAM, BIWEEKLY
     Route: 058
  16. DUPILUMAB [Concomitant]
     Active Substance: DUPILUMAB
     Dosage: 300 MILLIGRAM, BIWEEKLY
     Route: 058
  17. CLOBETASOL [Concomitant]
     Active Substance: CLOBETASOL
     Indication: Guttate psoriasis
     Dosage: UNK, BID
  18. CLOBETASOL [Concomitant]
     Active Substance: CLOBETASOL
     Dosage: UNK, BID
     Route: 061
  19. CLOBETASOL [Concomitant]
     Active Substance: CLOBETASOL
     Dosage: UNK, BID
     Route: 061
  20. CLOBETASOL [Concomitant]
     Active Substance: CLOBETASOL
     Dosage: UNK, BID
  21. CALCIPOTRIENE [Concomitant]
     Active Substance: CALCIPOTRIENE
     Indication: Intertrigo
  22. CALCIPOTRIENE [Concomitant]
     Active Substance: CALCIPOTRIENE
     Route: 065
  23. CALCIPOTRIENE [Concomitant]
     Active Substance: CALCIPOTRIENE
     Route: 065
  24. CALCIPOTRIENE [Concomitant]
     Active Substance: CALCIPOTRIENE
  25. FLUCONAZOLE [Concomitant]
     Active Substance: FLUCONAZOLE
     Indication: Intertrigo
  26. FLUCONAZOLE [Concomitant]
     Active Substance: FLUCONAZOLE
     Route: 048
  27. FLUCONAZOLE [Concomitant]
     Active Substance: FLUCONAZOLE
     Route: 048
  28. FLUCONAZOLE [Concomitant]
     Active Substance: FLUCONAZOLE
  29. CICLOPIROX [Concomitant]
     Active Substance: CICLOPIROX
     Indication: Intertrigo
  30. CICLOPIROX [Concomitant]
     Active Substance: CICLOPIROX
     Route: 061
  31. CICLOPIROX [Concomitant]
     Active Substance: CICLOPIROX
     Route: 061
  32. CICLOPIROX [Concomitant]
     Active Substance: CICLOPIROX

REACTIONS (1)
  - Drug ineffective [Unknown]
